FAERS Safety Report 13676232 (Version 2)
Quarter: 2017Q3

REPORT INFORMATION
  Report Type: Spontaneous
  Country: US (occurrence: US)
  Receive Date: 20170622
  Receipt Date: 20170703
  Transmission Date: 20171127
  Serious: Yes (Other)
  Sender: FDA-Public Use
  Company Number: US-ROCHE-1952634

PATIENT
  Sex: Female
  Weight: 15.35 kg

DRUGS (6)
  1. FLONASE [Concomitant]
     Active Substance: FLUTICASONE PROPIONATE
     Route: 065
  2. CLARITIN (UNITED STATES) [Concomitant]
     Route: 065
  3. XOLAIR [Suspect]
     Active Substance: OMALIZUMAB
     Indication: URTICARIA
     Route: 058
     Dates: start: 20170530
  4. LEVOCETIRIZINE [Concomitant]
     Active Substance: LEVOCETIRIZINE
     Route: 065
  5. BREO ELLIPTA [Concomitant]
     Active Substance: FLUTICASONE FUROATE\VILANTEROL TRIFENATATE
     Route: 065
  6. PEPCID (UNITED STATES) [Concomitant]
     Route: 065

REACTIONS (5)
  - Dizziness [Unknown]
  - Urticaria [Unknown]
  - Metamorphopsia [Unknown]
  - Throat tightness [Unknown]
  - Pruritus [Unknown]
